FAERS Safety Report 5366143-3 (Version None)
Quarter: 2007Q2

REPORT INFORMATION
  Report Type: 
  Country: None (occurrence: None)
  Receive Date: 20070530
  Receipt Date: 20070104
  Transmission Date: 20071010
  Serious: No
  Sender: FDA-Public Use
  Company Number: 2005PV003346

PATIENT
  Age: 50 Year
  Sex: Female
  Weight: 81.1939 kg

DRUGS (19)
  1. BYETTA [Suspect]
     Indication: DIABETES MELLITUS NON-INSULIN-DEPENDENT
     Dosage: 10 MCG;BID;SC   5 MCG;BID;SC
     Route: 058
     Dates: start: 20051014, end: 20051102
  2. BYETTA [Suspect]
     Indication: DIABETES MELLITUS NON-INSULIN-DEPENDENT
     Dosage: 10 MCG;BID;SC   5 MCG;BID;SC
     Route: 058
     Dates: start: 20051103
  3. BYETTA [Suspect]
  4. ESTROGEN [Suspect]
     Indication: DRUG USE FOR UNKNOWN INDICATION
     Dates: end: 20050101
  5. METFORMIN HCL [Concomitant]
  6. GLIPIZIDE [Concomitant]
  7. PLAVIX [Concomitant]
  8. ASPIRIN [Concomitant]
  9. ACTOS [Concomitant]
  10. FEMHRT [Concomitant]
  11. ATENOLOL [Concomitant]
  12. ATROVENT [Concomitant]
  13. DETROL LA [Concomitant]
  14. DIOVAN [Concomitant]
  15. ZYRTEC [Concomitant]
  16. ADVAIR DISKUS 100/50 [Concomitant]
  17. AMBIEN [Concomitant]
  18. VITAMIN CAP [Concomitant]
  19. GLIPIZIDE [Concomitant]

REACTIONS (11)
  - BLOOD GLUCOSE INCREASED [None]
  - DECREASED APPETITE [None]
  - FEELING JITTERY [None]
  - INCORRECT DOSE ADMINISTERED [None]
  - INJECTION SITE BRUISING [None]
  - INJECTION SITE HAEMORRHAGE [None]
  - INJECTION SITE PAIN [None]
  - INJECTION SITE PRURITUS [None]
  - MUSCLE SPASMS [None]
  - NAUSEA [None]
  - WEIGHT DECREASED [None]
